FAERS Safety Report 8954870 (Version 1)
Quarter: 2012Q4

REPORT INFORMATION
  Report Type: 
  Country: FR (occurrence: FR)
  Receive Date: 20121207
  Receipt Date: 20121207
  Transmission Date: 20130627
  Serious: Yes (Hospitalization)
  Sender: FDA-Public Use
  Company Number: FR-MYLANLABS-2012S1024339

PATIENT
  Age: 16 Year
  Sex: Male

DRUGS (2)
  1. ETOPOSIDE [Suspect]
     Indication: BONE SARCOMA
     Route: 042
     Dates: start: 20121004, end: 20121007
  2. HOLOXAN [Suspect]
     Indication: BONE SARCOMA
     Route: 042
     Dates: start: 20121004, end: 20121007

REACTIONS (1)
  - Haematuria [Recovering/Resolving]
